FAERS Safety Report 22952067 (Version 2)
Quarter: 2023Q4

REPORT INFORMATION
  Report Type: Spontaneous
  Country: US (occurrence: US)
  Receive Date: 20230918
  Receipt Date: 20231017
  Transmission Date: 20240110
  Serious: No
  Sender: FDA-Public Use
  Company Number: US-ALK-ABELLO A/S-2023AA003117

PATIENT

DRUGS (5)
  1. GLYCERIN [Suspect]
     Active Substance: GLYCERIN
     Indication: Skin test
     Dosage: UNK
     Dates: start: 20230713
  2. FLUTICASONE [Concomitant]
     Active Substance: FLUTICASONE
     Indication: Product used for unknown indication
  3. IPRATROPIUM [Concomitant]
     Active Substance: IPRATROPIUM
     Indication: Product used for unknown indication
  4. COLLAGEN PLUS C [Concomitant]
     Indication: Product used for unknown indication
  5. OMEPRAZOLE [Concomitant]
     Active Substance: OMEPRAZOLE
     Indication: Product used for unknown indication

REACTIONS (1)
  - False positive investigation result [Recovered/Resolved]

NARRATIVE: CASE EVENT DATE: 20230713
